FAERS Safety Report 7490994-2 (Version None)
Quarter: 2011Q2

REPORT INFORMATION
  Report Type: 
  Country: None (occurrence: None)
  Receive Date: 20110519
  Receipt Date: 20110506
  Transmission Date: 20111010
  Serious: Yes (Hospitalization)
  Sender: FDA-Public Use
  Company Number: US-ACTELION-A-US2011-48505

PATIENT

DRUGS (3)
  1. SILDENAFIL CITRATE [Concomitant]
  2. COUMADIN [Concomitant]
  3. EPOPROSTENOL SODIUM [Suspect]
     Indication: PULMONARY ARTERIAL HYPERTENSION
     Dosage: 38 NG/KG, PER MIN
     Route: 042
     Dates: start: 20110208

REACTIONS (2)
  - DYSPNOEA [None]
  - PNEUMONIA [None]
